FAERS Safety Report 17376882 (Version 1)
Quarter: 2020Q1

REPORT INFORMATION
  Report Type: Spontaneous
  Country: US (occurrence: US)
  Receive Date: 20200205
  Receipt Date: 20200205
  Transmission Date: 20200409
  Serious: No
  Sender: FDA-Public Use
  Company Number: None

PATIENT
  Age: 66 Year
  Sex: Female
  Weight: 60.75 kg

DRUGS (14)
  1. TREXIMET [Concomitant]
     Active Substance: NAPROXEN SODIUM\SUMATRIPTAN SUCCINATE
  2. THYROXINE 88MCG [Concomitant]
  3. ASPIRIN 81MG [Concomitant]
     Active Substance: ASPIRIN
  4. ATORVASTATIN 10MG [Concomitant]
     Active Substance: ATORVASTATIN
  5. HYDROCHLOROTHIAZIDE 12.5MG [Concomitant]
     Active Substance: HYDROCHLOROTHIAZIDE
  6. ZOLPIDEM [Concomitant]
     Active Substance: ZOLPIDEM TARTRATE
  7. SENNA-S [Concomitant]
     Active Substance: DOCUSATE SODIUM\SENNOSIDES
  8. CALCIUM [Concomitant]
     Active Substance: CALCIUM
  9. CO Q 10  100MG [Concomitant]
  10. AIMOVIG [Suspect]
     Active Substance: ERENUMAB-AOOE
     Indication: MIGRAINE
     Dosage: ?          QUANTITY:1 INJECTION(S);OTHER FREQUENCY:MONTHLY;?
     Route: 030
     Dates: start: 20191010, end: 20200117
  11. MULTIVITAMIN [Concomitant]
     Active Substance: VITAMINS
  12. TOPAMAX [Suspect]
     Active Substance: TOPIRAMATE
  13. BIOTIN 2500MCG [Concomitant]
  14. D3 125MCG [Concomitant]

REACTIONS (2)
  - Taste disorder [None]
  - Alopecia [None]

NARRATIVE: CASE EVENT DATE: 20191201
